FAERS Safety Report 9547232 (Version 1)
Quarter: 2013Q2

REPORT INFORMATION
  Report Type: Spontaneous
  Country: US (occurrence: None)
  Receive Date: 20130606
  Receipt Date: 20130606
  Transmission Date: 20140414
  Serious: Yes (Other)
  Sender: FDA-Public Use
  Company Number: 2012PROUSA02314

PATIENT
  Age: 72 Year
  Sex: Male

DRUGS (20)
  1. PROVENGE [Suspect]
     Dosage: 250 ML, SINGLE, INTRAVENOUS
     Route: 042
     Dates: start: 20121116, end: 20121116
  2. GABAPENTIN GLENMARK (GABAPENTIN) [Concomitant]
  3. LISINOPRIL [Concomitant]
  4. VERAPAMIL (VERAPAMIL HYDROCHLORIDE) (VERAPAMIL HYDROCHLORIDE) [Concomitant]
  5. HYDROCODONE BITARTRATE AND ACETAMINOPHEN (HYDROCODONE BITARTRATE, PARACETAMOL) [Concomitant]
  6. VENLAFAXINE [Concomitant]
  7. TERBINAFINE [Concomitant]
  8. INSULIN (INSULIN PORCINE) [Concomitant]
  9. CENTRUM SILVER (ASCORBIC ACID, BIOTIN, CALCIUM, CALCIUM PANTOTHENATE, CHLORINE, CHROMIUM, COLECALCIFEROL, COPPER, CYANOCOBALAMIN, FOLIC ACID, IODINE, IRON, MAGNESIUM, MANGANESE, MOLYBDENUM, NICKEL, NICOTINAMIDE, PHOSPHORUS, PHYTOMENADIONE, POTASSIUM, PYRIDOXINE HYDROCHLORIDE, RETINOL, RIBOFLAVIN, SELENIUM, SILICON DIOXIDE, THIAMINE HYDROCHLORIDE, TOCOPHEROL, VANADIN, ZINC) [Concomitant]
  10. METANX (CALCIUM MEFOLINATE, PYRIDOXINE HYDROCHLORIDE, VITAMIN B12 NOS) [Concomitant]
  11. INSULIN LISPRO (INSULIN LISPRO) [Concomitant]
  12. ELIGARD (LEUPRORELIN ACETATE) [Concomitant]
  13. HYDROCORTISONE ACETATE [Concomitant]
  14. TAMSULOSIN HYDROCHLORIDE [Concomitant]
  15. CYCLOBENZAPRINE HYDROCHLORIDE [Concomitant]
  16. ASPIRIN (ACETYLSALICYLIC ACID) [Concomitant]
  17. RANITIDINE (RANITIDINE HYDROCHLORIDE) [Concomitant]
  18. SINGULAIR [Concomitant]
  19. ADVAIR (FLUTICASONE PROPIONATE, SALMETEROL XINAFOATE) [Concomitant]
  20. ACETAMINOPHEN (PARACETAMOL) [Concomitant]

REACTIONS (3)
  - Venous insufficiency [None]
  - Blister [None]
  - Pain in extremity [None]
